FAERS Safety Report 10509040 (Version 6)
Quarter: 2016Q1

REPORT INFORMATION
  Report Type: Spontaneous
  Country: US (occurrence: US)
  Receive Date: 20141009
  Receipt Date: 20160331
  Transmission Date: 20160525
  Serious: Yes (Other)
  Sender: FDA-Public Use
  Company Number: US-ASTRAZENECA-2014SE69488

PATIENT
  Age: 65 Year
  Sex: Female
  Weight: 51.7 kg

DRUGS (22)
  1. OSCAL [Concomitant]
     Active Substance: CALCIUM CARBONATE
     Indication: MINERAL SUPPLEMENTATION
     Route: 048
  2. LANSOPRAZOLE. [Concomitant]
     Active Substance: LANSOPRAZOLE
  3. SYMBICORT [Suspect]
     Active Substance: BUDESONIDE\FORMOTEROL FUMARATE DIHYDRATE
     Indication: CHRONIC OBSTRUCTIVE PULMONARY DISEASE
     Dosage: 160/4.5 MCG, 2 PUFFS TWICE PER DAY
     Route: 055
  4. SYMBICORT [Suspect]
     Active Substance: BUDESONIDE\FORMOTEROL FUMARATE DIHYDRATE
     Indication: ASTHMA
     Dosage: 160/4.5 MCG, 2 PUFFS TWICE PER DAY
     Route: 055
  5. ZETIA [Concomitant]
     Active Substance: EZETIMIBE
     Indication: BLOOD CHOLESTEROL ABNORMAL
     Route: 048
     Dates: start: 2004
  6. TUDORZA PRESSAIR [Suspect]
     Active Substance: ACLIDINIUM BROMIDE
     Indication: ASTHMA
     Route: 055
  7. PREVACID [Concomitant]
     Active Substance: LANSOPRAZOLE
     Indication: GASTROOESOPHAGEAL REFLUX DISEASE
     Route: 048
  8. VERAPAMIL [Concomitant]
     Active Substance: VERAPAMIL HYDROCHLORIDE
     Indication: DIZZINESS
     Route: 048
     Dates: start: 2007
  9. SYMBICORT [Suspect]
     Active Substance: BUDESONIDE\FORMOTEROL FUMARATE DIHYDRATE
     Indication: ASTHMA
     Dosage: 320 MCG, TWO TIMES A DAY
     Route: 055
     Dates: start: 2012, end: 201410
  10. CLONAZEPAM. [Concomitant]
     Active Substance: CLONAZEPAM
     Indication: ANXIETY
     Route: 048
     Dates: start: 2012
  11. SELENIUM [Concomitant]
     Active Substance: SELENIUM
     Indication: LIVER DISORDER
     Route: 048
  12. AFRIN [Concomitant]
     Active Substance: OXYMETAZOLINE
     Dosage: AS REQUIRED
     Route: 045
  13. SYMBICORT [Suspect]
     Active Substance: BUDESONIDE\FORMOTEROL FUMARATE DIHYDRATE
     Indication: CHRONIC OBSTRUCTIVE PULMONARY DISEASE
     Dosage: 320 MCG, TWO TIMES A DAY
     Route: 055
     Dates: start: 2012, end: 201410
  14. ADDARALL [Concomitant]
     Indication: ATTENTION DEFICIT/HYPERACTIVITY DISORDER
     Route: 048
     Dates: start: 2013
  15. ZYRTEC [Concomitant]
     Active Substance: CETIRIZINE HYDROCHLORIDE
     Indication: DRUG HYPERSENSITIVITY
     Dosage: AS REQUIRED
     Route: 048
  16. ZOCOR [Concomitant]
     Active Substance: SIMVASTATIN
  17. PROVENTIL [Concomitant]
     Active Substance: ALBUTEROL
     Indication: UNEVALUABLE EVENT
  18. TUDORZA PRESSAIR [Suspect]
     Active Substance: ACLIDINIUM BROMIDE
     Indication: CHRONIC OBSTRUCTIVE PULMONARY DISEASE
     Route: 055
  19. PREVACID [Concomitant]
     Active Substance: LANSOPRAZOLE
     Indication: ULCER
     Route: 048
  20. PREVACID [Concomitant]
     Active Substance: LANSOPRAZOLE
     Indication: ULCER
     Route: 048
  21. PREVACID [Concomitant]
     Active Substance: LANSOPRAZOLE
     Indication: GASTROOESOPHAGEAL REFLUX DISEASE
     Route: 048
  22. FISH OIL [Concomitant]
     Active Substance: FISH OIL
     Route: 048

REACTIONS (25)
  - Fall [Unknown]
  - Intentional product misuse [Recovered/Resolved]
  - Muscle strain [Not Recovered/Not Resolved]
  - Candida infection [Recovered/Resolved]
  - Stress [Unknown]
  - Dysphonia [Not Recovered/Not Resolved]
  - Productive cough [Unknown]
  - Visual impairment [Unknown]
  - Pain [Unknown]
  - Pain in extremity [Unknown]
  - Hot flush [Recovered/Resolved]
  - Hypersomnia [Unknown]
  - Dysphonia [Not Recovered/Not Resolved]
  - Malaise [Unknown]
  - Alveolar osteitis [Unknown]
  - Viral infection [Unknown]
  - Sinus disorder [Unknown]
  - Lymphadenopathy [Unknown]
  - Back injury [Unknown]
  - Fatigue [Not Recovered/Not Resolved]
  - Dyspnoea [Unknown]
  - Gastrooesophageal reflux disease [Unknown]
  - Cataract [Unknown]
  - Panic attack [Unknown]
  - Intentional device misuse [Unknown]

NARRATIVE: CASE EVENT DATE: 2014
